FAERS Safety Report 8396048-5 (Version None)
Quarter: 2012Q2

REPORT INFORMATION
  Report Type: 
  Country: None (occurrence: None)
  Receive Date: 20120530
  Receipt Date: 20120524
  Transmission Date: 20120825
  Serious: No
  Sender: FDA-Public Use
  Company Number: US-PFIZER INC-2012126231

PATIENT
  Sex: Female
  Weight: 67.12 kg

DRUGS (6)
  1. COREG [Concomitant]
     Indication: BLOOD PRESSURE ABNORMAL
     Dosage: 25 MG, DAILY
  2. PREMARIN [Suspect]
     Indication: PELVIC PROLAPSE
     Dosage: UNK,3 TIMES A WEEK
     Route: 067
  3. VASOTEC [Concomitant]
     Indication: BLOOD PRESSURE ABNORMAL
     Dosage: 20 MG, DAILY
  4. PREMARIN [Suspect]
     Dosage: UNK
  5. CLONIDINE [Concomitant]
     Indication: BLOOD PRESSURE ABNORMAL
     Dosage: 10 MG, DAILY
  6. NORVASC [Concomitant]
     Indication: BLOOD PRESSURE ABNORMAL
     Dosage: 10 MG, DAILY

REACTIONS (5)
  - FEELING ABNORMAL [None]
  - EXPIRED DRUG ADMINISTERED [None]
  - POOR QUALITY DRUG ADMINISTERED [None]
  - PAIN [None]
  - DRUG INEFFECTIVE [None]
